FAERS Safety Report 16133516 (Version 1)
Quarter: 2019Q1

REPORT INFORMATION
  Report Type: Spontaneous
  Country: NL (occurrence: DK)
  Receive Date: 20190329
  Receipt Date: 20190329
  Transmission Date: 20190418
  Serious: Yes (Other)
  Sender: FDA-Public Use
  Company Number: DK-FRESENIUS KABI-FK201903150

PATIENT
  Age: 43 Year
  Sex: Male

DRUGS (5)
  1. BLEOMYCIN [Suspect]
     Active Substance: BLEOMYCIN SULFATE
     Indication: TESTIS CANCER
     Route: 042
     Dates: start: 20130124, end: 2013
  2. ETOPOSIDE (MANUFACTURER UNKNOWN) [Suspect]
     Active Substance: ETOPOSIDE
     Indication: TESTIS CANCER
     Route: 065
     Dates: start: 20130124, end: 2013
  3. CISPLATIN. [Suspect]
     Active Substance: CISPLATIN
     Indication: TESTIS CANCER
     Route: 042
     Dates: start: 20130124, end: 201307
  4. IFOSFAMIDE. [Concomitant]
     Active Substance: IFOSFAMIDE
     Indication: TESTIS CANCER
     Route: 042
     Dates: start: 201307, end: 201307
  5. PACLITAXEL. [Concomitant]
     Active Substance: PACLITAXEL
     Indication: TESTIS CANCER
     Route: 042
     Dates: start: 201307, end: 201307

REACTIONS (7)
  - Polyneuropathy [Not Recovered/Not Resolved]
  - Neuralgia [Unknown]
  - Tinnitus [Unknown]
  - Sleep disorder [Not Recovered/Not Resolved]
  - Neurotoxicity [Not Recovered/Not Resolved]
  - Dizziness [Unknown]
  - Sensory disturbance [Not Recovered/Not Resolved]

NARRATIVE: CASE EVENT DATE: 2013
